FAERS Safety Report 4324851-7 (Version None)
Quarter: 2004Q1

REPORT INFORMATION
  Report Type: 
  Country: None (occurrence: None)
  Receive Date: 20040322
  Receipt Date: 20040305
  Transmission Date: 20041129
  Serious: Yes (Hospitalization)
  Sender: FDA-Public Use
  Company Number: DSA_24074_2004

PATIENT
  Age: 73 Year
  Sex: Male

DRUGS (7)
  1. LORAZEPAM [Suspect]
     Dosage: 1.5 MG QD PO
     Route: 048
     Dates: start: 20031230, end: 20040101
  2. AKINETON RETARD [Suspect]
     Dosage: 4 MG QD PO
     Route: 048
     Dates: start: 20031201
  3. CIPRAMIL [Suspect]
     Dosage: 40 MG QD PO
     Route: 048
     Dates: start: 20030901
  4. SULFAMETHOXAZOLE + TRIMETHOPRIM [Suspect]
     Dosage: 960 MG QD PO
     Route: 048
     Dates: start: 20031230, end: 20040105
  5. RISPERDAL [Suspect]
     Dosage: 5 MG QD PO
     Route: 048
     Dates: start: 20031222, end: 20040102
  6. RISPERDAL [Suspect]
     Dosage: 4 MG QD PO
     Route: 048
     Dates: start: 20031202, end: 20031221
  7. RISPERDAL [Suspect]
     Dosage: 3 MG QD PO
     Route: 048
     Dates: start: 20030309, end: 20031201

REACTIONS (6)
  - AGITATION [None]
  - BIPOLAR DISORDER [None]
  - DEPRESSION [None]
  - INTENTIONAL SELF-INJURY [None]
  - MANIA [None]
  - RESTLESSNESS [None]
